FAERS Safety Report 6252031-7 (Version None)
Quarter: 2009Q2

REPORT INFORMATION
  Report Type: 
  Country: None (occurrence: None)
  Receive Date: 20090630
  Receipt Date: 20060404
  Transmission Date: 20091009
  Serious: Yes (Death, Hospitalization)
  Sender: FDA-Public Use
  Company Number: US-ROCHE-638560

PATIENT
  Sex: Male

DRUGS (26)
  1. ENFUVIRTIDE [Suspect]
     Indication: HIV INFECTION
     Route: 065
     Dates: start: 20060101, end: 20060701
  2. APTIVUS [Concomitant]
     Dates: start: 20041013, end: 20050401
  3. APTIVUS [Concomitant]
     Dates: start: 20051010, end: 20070101
  4. NORVIR [Concomitant]
     Dates: start: 20041013, end: 20050401
  5. NORVIR [Concomitant]
     Dates: end: 20051018
  6. NORVIR [Concomitant]
     Dates: start: 20051010, end: 20070601
  7. SUSTIVA [Concomitant]
     Dosage: FREQ: QD
     Dates: start: 20041013, end: 20051018
  8. VIREAD [Concomitant]
     Dosage: FREQ: QD
     Dates: start: 20041013, end: 20050401
  9. VIREAD [Concomitant]
     Dosage: FREQ: QD
     Dates: start: 20051010, end: 20070101
  10. VIRAMUNE [Concomitant]
     Dosage: FREQ: QD
     Dates: start: 20050318, end: 20050401
  11. VIRAMUNE [Concomitant]
     Dates: start: 20051010, end: 20060601
  12. ZIAGEN [Concomitant]
     Dates: start: 20060601, end: 20070101
  13. DAPSONE [Concomitant]
     Dosage: FREQ: QD
     Dates: start: 20031001, end: 20050401
  14. DAPSONE [Concomitant]
     Dosage: FREQ: QD
     Dates: start: 20050901, end: 20050901
  15. DAPSONE [Concomitant]
     Dosage: FREQ: QD
     Dates: start: 20051010, end: 20070101
  16. DIFLUCAN [Concomitant]
     Dosage: FREQ: QD
     Dates: start: 20031001, end: 20050401
  17. DIFLUCAN [Concomitant]
     Dosage: FREQ: QD
     Dates: start: 20050901, end: 20050901
  18. ZITHROMAX [Concomitant]
     Dosage: FREQ: Q WK
     Dates: start: 20031223, end: 20050401
  19. ZITHROMAX [Concomitant]
     Dosage: FREQ: Q WK
     Dates: start: 20051010, end: 20070101
  20. VANCOMYCIN [Concomitant]
     Dates: start: 20050907, end: 20050901
  21. VANCOMYCIN [Concomitant]
     Dosage: ROUTE : INTRAVENOUS, FREQ: Q12 HR
     Dates: start: 20051114, end: 20051128
  22. BIAXIN [Concomitant]
     Dates: start: 20050901, end: 20051201
  23. FLUCONAZOLE [Concomitant]
     Dosage: FREQ: QD
     Dates: start: 20051114, end: 20070101
  24. CUBICIN [Concomitant]
     Dosage: FREQ: Q24 MG
     Route: 042
     Dates: start: 20051212, end: 20051221
  25. DOXYCYCLINE [Concomitant]
     Dates: start: 20060123, end: 20060224
  26. AVELOX [Concomitant]
     Dosage: FREQ: QD
     Dates: start: 20060328, end: 20060405

REACTIONS (4)
  - DEATH [None]
  - DEHYDRATION [None]
  - DIARRHOEA [None]
  - HEADACHE [None]
